FAERS Safety Report 20049462 (Version 1)
Quarter: 2021Q4

REPORT INFORMATION
  Report Type: Spontaneous
  Country: AR (occurrence: AR)
  Receive Date: 20211109
  Receipt Date: 20211109
  Transmission Date: 20220303
  Serious: Yes (Other)
  Sender: FDA-Public Use
  Company Number: AR-PFIZER INC-202101465935

PATIENT
  Age: 53 Year
  Sex: Female

DRUGS (2)
  1. LORLATINIB [Suspect]
     Active Substance: LORLATINIB
     Indication: Lung cancer metastatic
     Dosage: 100 MG, 1X/DAY
     Dates: start: 20210624
  2. LORLATINIB [Suspect]
     Active Substance: LORLATINIB
     Dosage: 75 MG

REACTIONS (9)
  - Deafness [Unknown]
  - Malaise [Unknown]
  - Pain [Unknown]
  - Tinnitus [Unknown]
  - Tympanic membrane disorder [Unknown]
  - Feeding disorder [Unknown]
  - Vomiting [Unknown]
  - Dehydration [Unknown]
  - Nausea [Unknown]

NARRATIVE: CASE EVENT DATE: 20211017
